FAERS Safety Report 4708994-1 (Version None)
Quarter: 2005Q3

REPORT INFORMATION
  Report Type: 
  Country: None (occurrence: None)
  Receive Date: 20050707
  Receipt Date: 20050622
  Transmission Date: 20060218
  Serious: Yes (Other)
  Sender: FDA-Public Use
  Company Number: 2005092117

PATIENT
  Age: 68 Year
  Sex: Male

DRUGS (1)
  1. VIAGRA [Suspect]
     Indication: ILL-DEFINED DISORDER
     Dosage: 2 IN 1 WK, STOPPED 2 YRS AGO

REACTIONS (3)
  - OPTIC ATROPHY [None]
  - RETINAL DEPOSITS [None]
  - RETINAL DETACHMENT [None]
